FAERS Safety Report 4620091-2 (Version None)
Quarter: 2005Q1

REPORT INFORMATION
  Report Type: 
  Country: None (occurrence: None)
  Receive Date: 20050328
  Receipt Date: 20050316
  Transmission Date: 20050727
  Serious: Yes (Other)
  Sender: FDA-Public Use
  Company Number: IE-BRISTOL-MYERS SQUIBB COMPANY-12906186

PATIENT
  Sex: Female

DRUGS (2)
  1. ABILIFY [Suspect]
     Indication: SCHIZOPHRENIA
     Dosage: INITIATED AT 7.5 MG/DAY
     Route: 048
  2. DOLMATIL [Concomitant]
     Dosage: INCREASED TO 1600 MG/DAY

REACTIONS (3)
  - ANXIETY [None]
  - LOGORRHOEA [None]
  - PSYCHOTIC DISORDER [None]
